FAERS Safety Report 7929991-9 (Version None)
Quarter: 2011Q4

REPORT INFORMATION
  Report Type: 
  Country: None (occurrence: None)
  Receive Date: 20111117
  Receipt Date: 20111102
  Transmission Date: 20120403
  Serious: Yes (Life-Threatening, Hospitalization, Other)
  Sender: FDA-Public Use
  Company Number: 2011MA016021

PATIENT
  Age: 51 Year
  Sex: Female

DRUGS (2)
  1. DIPHENHYDRAMINE HCL [Suspect]
  2. BUPROPION HYDROCHLORIDE (WELLBUTRIN XL) [Suspect]

REACTIONS (22)
  - THROMBOCYTOPENIA [None]
  - BLOOD GLUCOSE INCREASED [None]
  - HAEMODIALYSIS [None]
  - ELECTROCARDIOGRAM QRS COMPLEX PROLONGED [None]
  - PUPILLARY REFLEX IMPAIRED [None]
  - GASTROINTESTINAL HAEMORRHAGE [None]
  - RENAL FAILURE ACUTE [None]
  - MYDRIASIS [None]
  - HAEMODYNAMIC INSTABILITY [None]
  - TOXICITY TO VARIOUS AGENTS [None]
  - GRAND MAL CONVULSION [None]
  - VENTRICULAR TACHYCARDIA [None]
  - CARDIOGENIC SHOCK [None]
  - RENAL TUBULAR NECROSIS [None]
  - HYPOTENSION [None]
  - LETHARGY [None]
  - HEPATIC FAILURE [None]
  - EJECTION FRACTION DECREASED [None]
  - PNEUMONIA ASPIRATION [None]
  - COLITIS [None]
  - SEPSIS [None]
  - MENTAL STATUS CHANGES [None]
